FAERS Safety Report 8232726-6 (Version None)
Quarter: 2012Q1

REPORT INFORMATION
  Report Type: 
  Country: None (occurrence: None)
  Receive Date: 20120323
  Receipt Date: 20120320
  Transmission Date: 20120608
  Serious: Yes (Death, Other)
  Sender: FDA-Public Use
  Company Number: CA-ABBOTT-12P-028-0910406-00

PATIENT
  Sex: Male

DRUGS (3)
  1. HUMIRA [Suspect]
     Indication: CROHN'S DISEASE
     Route: 058
     Dates: start: 20110629, end: 20110824
  2. HUMIRA [Suspect]
     Dosage: 160 MG
  3. HUMIRA [Suspect]
     Dosage: 80 MG

REACTIONS (10)
  - THROMBOPHLEBITIS SUPERFICIAL [None]
  - LOWER GASTROINTESTINAL HAEMORRHAGE [None]
  - PLEURAL EFFUSION [None]
  - DEEP VEIN THROMBOSIS [None]
  - COLORECTAL CANCER [None]
  - ANAEMIA [None]
  - CARDIAC ARREST [None]
  - ASPIRATION [None]
  - HYPOXIC-ISCHAEMIC ENCEPHALOPATHY [None]
  - RESPIRATORY DISTRESS [None]
